FAERS Safety Report 10752521 (Version 3)
Quarter: 2015Q1

REPORT INFORMATION
  Report Type: Spontaneous
  Country: JP (occurrence: JP)
  Receive Date: 20150130
  Receipt Date: 20150217
  Transmission Date: 20150721
  Serious: Yes (Death, Other)
  Sender: FDA-Public Use
  Company Number: PHJP2015JP001168

PATIENT
  Age: 37 Year
  Sex: Male

DRUGS (5)
  1. AMITIZA [Concomitant]
     Active Substance: LUBIPROSTONE
     Indication: PRODUCT USED FOR UNKNOWN INDICATION
     Dosage: 48 UG, UNK
     Route: 048
     Dates: end: 20150123
  2. CLOZARIL [Suspect]
     Active Substance: CLOZAPINE
     Dosage: 600 MG, UNK
     Route: 048
  3. SENNOSIDE [Concomitant]
     Active Substance: SENNOSIDES
     Indication: PRODUCT USED FOR UNKNOWN INDICATION
     Dosage: 24 MG, UNK
     Route: 048
     Dates: end: 20150123
  4. CLOZARIL [Suspect]
     Active Substance: CLOZAPINE
     Indication: SCHIZOPHRENIA
     Dosage: 12.5 MG, QD
     Route: 048
     Dates: start: 20140828
  5. DEPAKENE [Concomitant]
     Active Substance: VALPROIC ACID
     Indication: PRODUCT USED FOR UNKNOWN INDICATION
     Dosage: 400 MG, UNK
     Route: 048
     Dates: end: 20150123

REACTIONS (4)
  - Pulmonary oedema [Fatal]
  - Polydipsia [Not Recovered/Not Resolved]
  - Blood sodium decreased [Unknown]
  - Cardiac failure [Fatal]

NARRATIVE: CASE EVENT DATE: 20150123
